FAERS Safety Report 20885115 (Version 1)
Quarter: 2022Q2

REPORT INFORMATION
  Report Type: Spontaneous
  Country: CN (occurrence: CN)
  Receive Date: 20220527
  Receipt Date: 20220527
  Transmission Date: 20220721
  Serious: Yes (Other)
  Sender: FDA-Public Use
  Company Number: None

PATIENT
  Age: 16 Year
  Sex: Female
  Weight: 88 kg

DRUGS (2)
  1. MANNITOL [Suspect]
     Active Substance: MANNITOL
     Indication: Swelling
     Dosage: 250.000000 ML ONCE DAILY
     Route: 041
     Dates: start: 20220411, end: 20220413
  2. MANNITOL [Suspect]
     Active Substance: MANNITOL
     Indication: Meniscus injury

REACTIONS (3)
  - Chest discomfort [Recovered/Resolved]
  - Breath holding [Recovered/Resolved]
  - Pruritus [Recovered/Resolved]

NARRATIVE: CASE EVENT DATE: 20220413
